FAERS Safety Report 14899567 (Version 2)
Quarter: 2018Q3

REPORT INFORMATION
  Report Type: Report from Study
  Country: US (occurrence: US)
  Receive Date: 20180516
  Receipt Date: 20180710
  Transmission Date: 20181010
  Serious: Yes (Other)
  Sender: FDA-Public Use
  Company Number: US-ACADIA PHARMACEUTICALS INC.-ACA-2018-008821

PATIENT
  Sex: Female

DRUGS (3)
  1. NUPLAZID [Suspect]
     Active Substance: PIMAVANSERIN TARTRATE
     Indication: PARKINSON^S DISEASE PSYCHOSIS
  2. NUPLAZID [Suspect]
     Active Substance: PIMAVANSERIN TARTRATE
     Indication: HALLUCINATION
     Dosage: 34 MG, QD
     Route: 065
     Dates: start: 20180418
  3. NUPLAZID [Suspect]
     Active Substance: PIMAVANSERIN TARTRATE
     Indication: DELUSION

REACTIONS (11)
  - Lethargy [Unknown]
  - Asthenia [Unknown]
  - Arrhythmia [Unknown]
  - Tremor [Unknown]
  - Wheelchair user [Unknown]
  - Depression [Unknown]
  - Gait inability [Unknown]
  - Hallucination, visual [Unknown]
  - Hallucination [Unknown]
  - Dyspnoea [Unknown]
  - Drug ineffective [Unknown]
